FAERS Safety Report 17371192 (Version 1)
Quarter: 2020Q1

REPORT INFORMATION
  Report Type: Spontaneous
  Country: IT (occurrence: IT)
  Receive Date: 20200205
  Receipt Date: 20200205
  Transmission Date: 20200409
  Serious: Yes (Other)
  Sender: FDA-Public Use
  Company Number: IT-SA-2020SA024878

PATIENT
  Sex: Male

DRUGS (2)
  1. ZALTRAP [Suspect]
     Active Substance: ZIV-AFLIBERCEPT
     Indication: ADJUVANT THERAPY
     Dosage: 240 MG, EVERY 14 DAYS
     Route: 041
  2. ZALTRAP [Suspect]
     Active Substance: ZIV-AFLIBERCEPT
     Dosage: 240 MG, EVERY 14 DAYS
     Route: 041

REACTIONS (5)
  - Glomerulonephritis [Not Recovered/Not Resolved]
  - Urinary nitrogen increased [Not Recovered/Not Resolved]
  - Proteinuria [Not Recovered/Not Resolved]
  - Anaemia [Not Recovered/Not Resolved]
  - Creatinine renal clearance increased [Not Recovered/Not Resolved]

NARRATIVE: CASE EVENT DATE: 201912
